FAERS Safety Report 6349150-3 (Version None)
Quarter: 2009Q3

REPORT INFORMATION
  Report Type: 
  Country: None (occurrence: None)
  Receive Date: 20090911
  Receipt Date: 20090706
  Transmission Date: 20100115
  Serious: No
  Sender: FDA-Public Use
  Company Number: US-BAYER-200925663NA

PATIENT
  Age: 17 Year
  Sex: Female
  Weight: 45 kg

DRUGS (2)
  1. YAZ [Suspect]
     Indication: MENSTRUATION IRREGULAR
     Route: 048
     Dates: start: 20090101
  2. IV FLUIDS [Concomitant]

REACTIONS (6)
  - APHAGIA [None]
  - AXILLARY MASS [None]
  - OFF LABEL USE [None]
  - OROPHARYNGEAL DISCOMFORT [None]
  - PHARYNGEAL OEDEMA [None]
  - VULVOVAGINAL MYCOTIC INFECTION [None]
